FAERS Safety Report 9922505 (Version 3)
Quarter: 2014Q2

REPORT INFORMATION
  Report Type: Spontaneous
  Country: IT (occurrence: IT)
  Receive Date: 20140225
  Receipt Date: 20140401
  Transmission Date: 20141212
  Serious: Yes (Other)
  Sender: FDA-Public Use
  Company Number: IT-PFIZER INC-2014051755

PATIENT
  Age: 89 Year
  Sex: Male

DRUGS (5)
  1. ZYVOXID [Suspect]
     Indication: STAPHYLOCOCCAL INFECTION
     Dosage: 1200 MG, CYCLIC
     Route: 048
     Dates: start: 20140122, end: 20140126
  2. TAVOR [Concomitant]
     Dosage: 1 MG, UNK
     Route: 048
  3. LASIX [Concomitant]
     Dosage: 25 MG, UNK
     Route: 048
  4. PANTORC [Concomitant]
     Dosage: 20 MG, UNK
     Route: 048
  5. NORMIX [Concomitant]
     Dosage: 200 MG, UNK
     Route: 048

REACTIONS (3)
  - Confusional state [Recovered/Resolved]
  - Malaise [Recovered/Resolved]
  - Somnolence [Recovered/Resolved]
